FAERS Safety Report 8826065 (Version 1)
Quarter: 2012Q4

REPORT INFORMATION
  Report Type: 
  Country: US (occurrence: US)
  Receive Date: 20121005
  Receipt Date: 20121005
  Transmission Date: 20130627
  Serious: Yes (Hospitalization, Other)
  Sender: FDA-Public Use
  Company Number: PHEH2012US019370

PATIENT
  Sex: Female
  Weight: 96.15 kg

DRUGS (17)
  1. RECLAST [Suspect]
     Dosage: UNK UKN, yearly
     Route: 042
  2. HUMIRA [Suspect]
     Indication: RHEUMATOID ARTHRITIS
     Dosage: 40 mg/0.8 ml, 1 in 2 week
     Route: 058
     Dates: start: 2002, end: 2011
  3. HUMIRA [Suspect]
     Dosage: 40 mg/08 ml, 1 in 1 week
     Route: 058
     Dates: start: 2011
  4. GLUCOTROL [Concomitant]
     Indication: DIABETES MELLITUS
     Dosage: 5 mg, UNK
  5. METFORMIN [Concomitant]
     Indication: DIABETES MELLITUS
     Dosage: 2 DF (1000mg), daily
  6. LOPID [Concomitant]
     Indication: BLOOD TRIGLYCERIDES INCREASED
     Dosage: 600 mg, UNK
  7. NEXIUM [Concomitant]
     Indication: GASTROOESOPHAGEAL REFLUX DISEASE
     Dosage: 40 mg, UNK
  8. FLEXERIL [Concomitant]
     Dosage: 10 mg, UNK
  9. ARAVA [Concomitant]
     Dosage: 10 mg, UNK
  10. VITAMIN D [Concomitant]
     Dosage: 2 DF (1000 IU), daily
  11. ASA [Concomitant]
     Dosage: 81 mg, UNK
  12. VESICARE [Concomitant]
     Indication: BLADDER DISORDER
     Dosage: 10 mg, UNK
  13. METOPROLOL [Concomitant]
     Indication: HYPERTENSION
     Dosage: 100 mg, UNK
  14. AMIODARONE [Concomitant]
     Indication: HEART RATE IRREGULAR
     Dosage: 1 DF, UNK
  15. COUMARIN [Concomitant]
     Dosage: 2.5-5 mg, UNK
  16. TRAMADOL [Concomitant]
     Indication: ARTHRALGIA
     Dosage: 50 mg, UNK
  17. LORTAB [Concomitant]
     Dosage: 10/500, UNK

REACTIONS (2)
  - Atrial fibrillation [Unknown]
  - Diabetes mellitus [Unknown]
